FAERS Safety Report 10262149 (Version 1)
Quarter: 2014Q2

REPORT INFORMATION
  Report Type: Spontaneous
  Country: US (occurrence: None)
  Receive Date: 20140624
  Receipt Date: 20140624
  Transmission Date: 20141212
  Serious: Yes (Other)
  Sender: FDA-Public Use
  Company Number: None

PATIENT
  Sex: Female
  Weight: 61.24 kg

DRUGS (11)
  1. ESCITALOPRAM OXALATE [Suspect]
     Indication: BIPOLAR DISORDER
     Route: 048
  2. ESCITALOPRAM OXALATE [Suspect]
     Indication: DEPRESSION
     Route: 048
  3. IBUPROFEN [Suspect]
  4. CIMETIDINE [Suspect]
  5. PRAVASTATIN [Suspect]
  6. LEXAPRO [Suspect]
  7. PROAIR HFA [Suspect]
  8. TRAZODONE [Suspect]
  9. ABILIFY [Suspect]
  10. METFORMIN [Suspect]
  11. LISINOPRIL [Suspect]

REACTIONS (3)
  - Product substitution issue [None]
  - Therapeutic response changed [None]
  - Drug ineffective [None]
